FAERS Safety Report 11272572 (Version 1)
Quarter: 2015Q3

REPORT INFORMATION
  Report Type: Spontaneous
  Country: US (occurrence: None)
  Receive Date: 20150713
  Receipt Date: 20150713
  Transmission Date: 20151125
  Serious: No
  Sender: FDA-Public Use
  Company Number: None

PATIENT
  Age: 47 Year
  Sex: Male
  Weight: 99.79 kg

DRUGS (1)
  1. CELECOXIB 200 MG TEVA USA [Suspect]
     Active Substance: CELECOXIB
     Route: 048

REACTIONS (1)
  - Abdominal discomfort [None]
